FAERS Safety Report 8867127 (Version 1)
Quarter: 2012Q4

REPORT INFORMATION
  Report Type: 
  Country: US (occurrence: US)
  Receive Date: 20121025
  Receipt Date: 20121025
  Transmission Date: 20130627
  Serious: No
  Sender: FDA-Public Use
  Company Number: US-AMGEN-USASP2012014868

PATIENT
  Age: 57 Year
  Sex: Male

DRUGS (2)
  1. ENBREL [Suspect]
     Indication: PSORIATIC ARTHROPATHY
     Dosage: 50 mg, qwk
     Dates: start: 20040501
  2. ENBREL [Suspect]
     Indication: PSORIASIS

REACTIONS (5)
  - Psoriatic arthropathy [Not Recovered/Not Resolved]
  - Blood cholesterol increased [Unknown]
  - Overweight [Unknown]
  - Insomnia [Unknown]
  - Rash pustular [Not Recovered/Not Resolved]
